FAERS Safety Report 16428976 (Version 4)
Quarter: 2019Q3

REPORT INFORMATION
  Report Type: Report from Study
  Country: US (occurrence: US)
  Receive Date: 20190613
  Receipt Date: 20190718
  Transmission Date: 20191004
  Serious: No
  Sender: FDA-Public Use
  Company Number: US-AMGEN-USASP2019093843

PATIENT
  Age: 60 Year
  Sex: Female

DRUGS (5)
  1. ENBREL [Suspect]
     Active Substance: ETANERCEPT
     Indication: RHEUMATOID ARTHRITIS
     Dosage: 50 MILLIGRAM, QWK
     Route: 065
     Dates: start: 201902
  2. ENBREL [Suspect]
     Active Substance: ETANERCEPT
     Dosage: 50 MILLIGRAM, QWK
     Route: 065
  3. METHOTREXATE. [Concomitant]
     Active Substance: METHOTREXATE
     Indication: RHEUMATOID ARTHRITIS
     Dosage: UNK
  4. FOLIC ACID. [Concomitant]
     Active Substance: FOLIC ACID
     Dosage: UNK
  5. VITAMIN D [COLECALCIFEROL] [Concomitant]
     Active Substance: CHOLECALCIFEROL
     Dosage: UNK

REACTIONS (12)
  - Pain in extremity [Unknown]
  - Injection site erythema [Unknown]
  - Injection site pruritus [Unknown]
  - Nausea [Unknown]
  - Accidental exposure to product [Unknown]
  - Arthralgia [Unknown]
  - Injection site swelling [Recovering/Resolving]
  - Dizziness [Unknown]
  - Wrong technique in product usage process [Unknown]
  - Headache [Unknown]
  - Injection site pain [Unknown]
  - Malaise [Unknown]

NARRATIVE: CASE EVENT DATE: 2019
